FAERS Safety Report 19856508 (Version 1)
Quarter: 2021Q3

REPORT INFORMATION
  Report Type: Spontaneous
  Country: KZ (occurrence: KZ)
  Receive Date: 20210920
  Receipt Date: 20210920
  Transmission Date: 20211014
  Serious: Yes (Life-Threatening, Other)
  Sender: FDA-Public Use
  Company Number: KZ-VIIV HEALTHCARE LIMITED-KZ2021EME196369

PATIENT
  Sex: Female

DRUGS (1)
  1. KIVEXA [Suspect]
     Active Substance: ABACAVIR SULFATE\LAMIVUDINE
     Indication: HIV INFECTION
     Dosage: UNK
     Route: 048
     Dates: start: 20210910, end: 20210910

REACTIONS (1)
  - Hypersensitivity [Recovering/Resolving]
